FAERS Safety Report 4660585-7 (Version None)
Quarter: 2005Q2

REPORT INFORMATION
  Report Type: 
  Country: None (occurrence: None)
  Receive Date: 20050512
  Receipt Date: 20050428
  Transmission Date: 20051028
  Serious: Yes (Hospitalization)
  Sender: FDA-Public Use
  Company Number: 2005AP02575

PATIENT
  Age: 27787 Day
  Sex: Male

DRUGS (2)
  1. IRESSA [Suspect]
     Indication: LUNG ADENOCARCINOMA
     Route: 048
     Dates: start: 20050408
  2. DIGITALIS CAP [Concomitant]
     Indication: ATRIAL FIBRILLATION

REACTIONS (2)
  - DISEASE PROGRESSION [None]
  - PLEURAL EFFUSION [None]
